FAERS Safety Report 24362076 (Version 1)
Quarter: 2024Q3

REPORT INFORMATION
  Report Type: Spontaneous
  Country: US (occurrence: None)
  Receive Date: 20240924
  Receipt Date: 20240924
  Transmission Date: 20241016
  Serious: Yes (unspecified)
  Sender: Public
  Company Number: None

PATIENT
  Age: 79 Year
  Sex: Female
  Weight: 54.45 kg

DRUGS (11)
  1. PROLIA [Suspect]
     Active Substance: DENOSUMAB
     Indication: Osteoporosis
     Dates: start: 20220226, end: 20240806
  2. RAMIPRIL [Concomitant]
     Active Substance: RAMIPRIL
  3. Eleiquis [Concomitant]
  4. distiazem [Concomitant]
  5. LATANOPROST [Concomitant]
     Active Substance: LATANOPROST
  6. Triamterence [Concomitant]
  7. TROSPIUM [Concomitant]
  8. AREDS-2 [Concomitant]
  9. VITAMIN C [Concomitant]
     Active Substance: ASCORBIC ACID
  10. Vitamin D [Concomitant]
  11. MELATONIN [Concomitant]

REACTIONS (6)
  - Urticaria [None]
  - Pruritus [None]
  - Discharge [None]
  - Hypotension [None]
  - Pain in jaw [None]
  - Swelling face [None]

NARRATIVE: CASE EVENT DATE: 20240916
